FAERS Safety Report 8207614-1 (Version None)
Quarter: 2012Q1

REPORT INFORMATION
  Report Type: 
  Country: None (occurrence: None)
  Receive Date: 20120314
  Receipt Date: 20120314
  Transmission Date: 20120608
  Serious: Yes (Other)
  Sender: FDA-Public Use
  Company Number: None

PATIENT
  Age: 62 Year
  Sex: Female
  Weight: 85.728 kg

DRUGS (1)
  1. SIMVASTATIN [Suspect]
     Indication: BLOOD CHOLESTEROL INCREASED
     Dosage: 20.0 MG
     Route: 048
     Dates: start: 19980601, end: 20120228

REACTIONS (5)
  - GAIT DISTURBANCE [None]
  - FATIGUE [None]
  - UNEVALUABLE EVENT [None]
  - PAIN IN EXTREMITY [None]
  - MUSCULAR WEAKNESS [None]
